FAERS Safety Report 9438225 (Version 1)
Quarter: 2013Q3

REPORT INFORMATION
  Report Type: Spontaneous
  Country: US (occurrence: US)
  Receive Date: 20130802
  Receipt Date: 20130802
  Transmission Date: 20140515
  Serious: No
  Sender: FDA-Public Use
  Company Number: US-BRISTOL-MYERS SQUIBB COMPANY-17064411

PATIENT
  Sex: Male

DRUGS (12)
  1. COUMADIN [Suspect]
     Dosage: DOSE INCREASED TO 10MG
  2. VITAMIN C [Concomitant]
  3. CHONDROITIN SULFATE + GLUCOSAMINE [Concomitant]
  4. CALCIUM [Concomitant]
  5. VITAMIN D [Concomitant]
  6. COENZYME-Q10 [Concomitant]
  7. TURMERIC [Concomitant]
  8. LIPOIC ACID [Concomitant]
  9. LYCOPENE [Concomitant]
  10. SAW PALMETTO [Concomitant]
  11. RESVERATROL [Concomitant]
  12. METHYLSULFONYLMETHANE [Concomitant]

REACTIONS (1)
  - International normalised ratio fluctuation [Unknown]
